FAERS Safety Report 15929684 (Version 1)
Quarter: 2019Q1

REPORT INFORMATION
  Report Type: Spontaneous
  Country: TR (occurrence: TR)
  Receive Date: 20190206
  Receipt Date: 20190206
  Transmission Date: 20190417
  Serious: Yes (Hospitalization)
  Sender: FDA-Public Use
  Company Number: PHHY2019TR027113

PATIENT

DRUGS (4)
  1. ASPIRIN. [Suspect]
     Active Substance: ASPIRIN
     Indication: FOETAL EXPOSURE DURING PREGNANCY
     Route: 064
  2. ENOXAPARIN [Suspect]
     Active Substance: ENOXAPARIN
     Indication: FOETAL EXPOSURE DURING PREGNANCY
     Route: 064
  3. METHYLPREDNISOLONE. [Suspect]
     Active Substance: METHYLPREDNISOLONE
     Indication: FOETAL EXPOSURE DURING PREGNANCY
     Route: 064
  4. METHYLDOPA. [Suspect]
     Active Substance: METHYLDOPA
     Indication: FOETAL EXPOSURE DURING PREGNANCY
     Route: 064

REACTIONS (5)
  - Foetal exposure during pregnancy [Unknown]
  - Low birth weight baby [Unknown]
  - Jaundice neonatal [Unknown]
  - Premature baby [Unknown]
  - Neonatal respiratory distress syndrome [Unknown]
